FAERS Safety Report 11155157 (Version 2)
Quarter: 2015Q2

REPORT INFORMATION
  Report Type: Spontaneous
  Country: AT (occurrence: AT)
  Receive Date: 20150602
  Receipt Date: 20150610
  Transmission Date: 20150821
  Serious: No
  Sender: FDA-Public Use
  Company Number: AT-BIOGENIDEC-2014BI110201

PATIENT
  Age: 27 Year
  Sex: Female

DRUGS (4)
  1. TYSABRI [Suspect]
     Active Substance: NATALIZUMAB
     Indication: RELAPSING-REMITTING MULTIPLE SCLEROSIS
     Route: 042
     Dates: start: 20150521
  2. URIVESC [Concomitant]
     Active Substance: TROSPIUM CHLORIDE
     Dates: start: 201008, end: 201410
  3. TYSABRI [Suspect]
     Active Substance: NATALIZUMAB
     Indication: RELAPSING-REMITTING MULTIPLE SCLEROSIS
     Route: 042
     Dates: start: 200906, end: 201212
  4. TYSABRI [Suspect]
     Active Substance: NATALIZUMAB
     Indication: RELAPSING-REMITTING MULTIPLE SCLEROSIS
     Route: 042
     Dates: start: 201402, end: 20140924

REACTIONS (2)
  - Maternal exposure during pregnancy [Recovered/Resolved]
  - Female sterilisation [Unknown]

NARRATIVE: CASE EVENT DATE: 20150511
